FAERS Safety Report 16733062 (Version 1)
Quarter: 2019Q3

REPORT INFORMATION
  Report Type: Spontaneous
  Country: FR (occurrence: FR)
  Receive Date: 20190823
  Receipt Date: 20190823
  Transmission Date: 20191005
  Serious: Yes (Other)
  Sender: FDA-Public Use
  Company Number: FR-EMD SERONO-230037M09FRA

PATIENT
  Age: 34 Year
  Sex: Male

DRUGS (3)
  1. REBIF [Suspect]
     Active Substance: INTERFERON BETA-1A
     Indication: PRODUCT USED FOR UNKNOWN INDICATION
     Dosage: SOLUTION INJECTABLE
     Route: 058
     Dates: start: 200011, end: 20090413
  2. SINTROM [Concomitant]
     Active Substance: ACENOCOUMAROL
     Indication: PRODUCT USED FOR UNKNOWN INDICATION
  3. REBIF [Suspect]
     Active Substance: INTERFERON BETA-1A
     Route: 058
     Dates: start: 20090610

REACTIONS (3)
  - Instillation site reaction [Recovering/Resolving]
  - Injection site inflammation [Recovering/Resolving]
  - Injection site necrosis [Recovering/Resolving]

NARRATIVE: CASE EVENT DATE: 20090414
